FAERS Safety Report 14369945 (Version 2)
Quarter: 2018Q2

REPORT INFORMATION
  Report Type: Spontaneous
  Country: US (occurrence: US)
  Receive Date: 20180110
  Receipt Date: 20180518
  Transmission Date: 20180711
  Serious: No
  Sender: FDA-Public Use
  Company Number: PHEH2018US000655

PATIENT
  Sex: Male

DRUGS (1)
  1. TRAVATAN Z [Suspect]
     Active Substance: TRAVOPROST
     Indication: ULCERATIVE KERATITIS
     Dosage: 1 GTT, QHS
     Route: 047

REACTIONS (7)
  - Foreign body sensation in eyes [Unknown]
  - Dry eye [Unknown]
  - Ocular hyperaemia [Unknown]
  - Lacrimation increased [Unknown]
  - Eye irritation [Unknown]
  - Photophobia [Unknown]
  - Asthenopia [Unknown]
